FAERS Safety Report 14740744 (Version 1)
Quarter: 2018Q2

REPORT INFORMATION
  Report Type: Spontaneous
  Country: US (occurrence: US)
  Receive Date: 20180404
  Receipt Date: 20180404
  Transmission Date: 20180711
  Serious: Yes (Other)
  Sender: FDA-Public Use
  Company Number: None

PATIENT
  Age: 57 Year
  Sex: Male
  Weight: 72 kg

DRUGS (4)
  1. LIALDA [Concomitant]
     Active Substance: MESALAMINE
  2. LISINOPRIL. [Concomitant]
     Active Substance: LISINOPRIL
  3. MEASALAMINE 1,2GM TAB ZYD [Suspect]
     Active Substance: MESALAMINE
     Indication: COLITIS ULCERATIVE
     Dosage: ?          QUANTITY:1 TABLET(S);?
     Route: 048
     Dates: start: 20180301, end: 20180404
  4. VITAMIN D3 [Concomitant]
     Active Substance: CHOLECALCIFEROL

REACTIONS (8)
  - Frequent bowel movements [None]
  - Colitis ulcerative [None]
  - Weight decreased [None]
  - Eating disorder [None]
  - Impaired work ability [None]
  - Rectal haemorrhage [None]
  - Product substitution issue [None]
  - Insomnia [None]

NARRATIVE: CASE EVENT DATE: 20180330
